FAERS Safety Report 20626301 (Version 1)
Quarter: 2022Q1

REPORT INFORMATION
  Report Type: Spontaneous
  Country: US (occurrence: None)
  Receive Date: 20220323
  Receipt Date: 20220323
  Transmission Date: 20220423
  Serious: No
  Sender: FDA-Public Use
  Company Number: US-ROCHE-2883049

PATIENT
  Sex: Female

DRUGS (1)
  1. ERIVEDGE [Suspect]
     Active Substance: VISMODEGIB
     Indication: Seborrhoeic keratosis
     Dosage: 150 MG DAILY BY MOUTH
     Route: 048
     Dates: start: 201905

REACTIONS (4)
  - Fatigue [Unknown]
  - Pain [Unknown]
  - Off label use [Unknown]
  - Nausea [Unknown]
